FAERS Safety Report 14721182 (Version 2)
Quarter: 2018Q3

REPORT INFORMATION
  Report Type: Spontaneous
  Country: US (occurrence: US)
  Receive Date: 20180405
  Receipt Date: 20180706
  Transmission Date: 20181010
  Serious: Yes (Other)
  Sender: FDA-Public Use
  Company Number: US-BAYER-2018-066382

PATIENT
  Age: 55 Year
  Sex: Female
  Weight: 77 kg

DRUGS (3)
  1. CLARITIN [Suspect]
     Active Substance: LORATADINE
     Indication: NASOPHARYNGITIS
  2. CHOLESTEROL [Concomitant]
     Active Substance: CHOLESTEROL
  3. CLARITIN [Suspect]
     Active Substance: LORATADINE
     Indication: HYPERSENSITIVITY
     Dosage: UNK, ONCE
     Route: 048
     Dates: start: 201304, end: 201304

REACTIONS (3)
  - Drug hypersensitivity [Unknown]
  - Palpitations [Recovered/Resolved]
  - Cardiac discomfort [Recovered/Resolved]

NARRATIVE: CASE EVENT DATE: 201304
